FAERS Safety Report 7374535-6 (Version None)
Quarter: 2011Q1

REPORT INFORMATION
  Report Type: 
  Country: None (occurrence: None)
  Receive Date: 20110325
  Receipt Date: 20100222
  Transmission Date: 20110831
  Serious: No
  Sender: FDA-Public Use
  Company Number: US-MYLANLABS-2010S1003113

PATIENT
  Age: 45 Year
  Sex: Female
  Weight: 110.22 kg

DRUGS (7)
  1. FENTANYL-100 [Suspect]
     Indication: RESTLESS LEGS SYNDROME
     Dosage: Q72H
     Route: 062
     Dates: start: 20100215
  2. FENTANYL-100 [Suspect]
     Indication: FIBROMYALGIA
     Dosage: Q72H
     Route: 062
     Dates: start: 20100215
  3. FENTANYL-100 [Suspect]
     Indication: GOUT
     Dosage: Q72H
     Route: 062
     Dates: start: 20100215
  4. FENTANYL-100 [Suspect]
     Indication: CARPAL TUNNEL SYNDROME
     Dosage: Q72H
     Route: 062
     Dates: start: 20100215
  5. GABAPENTIN [Concomitant]
  6. CLONAZEPAM [Concomitant]
  7. FENTANYL-100 [Suspect]
     Indication: INTERVERTEBRAL DISC PROTRUSION
     Dosage: Q72H
     Route: 062
     Dates: start: 20100215

REACTIONS (2)
  - SOMNOLENCE [None]
  - LOSS OF CONSCIOUSNESS [None]
